FAERS Safety Report 10047210 (Version 1)
Quarter: 2014Q1

REPORT INFORMATION
  Report Type: Spontaneous
  Country: US (occurrence: US)
  Receive Date: 20140331
  Receipt Date: 20140331
  Transmission Date: 20141002
  Serious: No
  Sender: FDA-Public Use
  Company Number: US-MYLANLABS-2013S1020047

PATIENT
  Age: 46 Year
  Sex: Female

DRUGS (3)
  1. FENTANYL TRANSDERMAL SYSTEM [Suspect]
     Indication: PAIN
     Dosage: CHANGE PATCH ONCE EVERY 48 HOURS.
     Route: 062
     Dates: start: 201304, end: 2013
  2. FENTANYL TRANSDERMAL SYSTEM [Suspect]
     Indication: PAIN
     Dosage: CHANGE PATCH ONCE EVERY 48 HOURS.
     Route: 062
     Dates: start: 201304, end: 2013
  3. ASKINA DERM FILM DRESSING [Suspect]
     Dosage: CHANGE PATCH EVERY 48 HOURS.
     Route: 062
     Dates: start: 2013, end: 2013

REACTIONS (4)
  - Dermatitis allergic [Recovering/Resolving]
  - Application site pain [Recovering/Resolving]
  - Pain of skin [Recovering/Resolving]
  - Application site erythema [Recovering/Resolving]
